FAERS Safety Report 25708191 (Version 1)
Quarter: 2025Q3

REPORT INFORMATION
  Report Type: Spontaneous
  Country: EU (occurrence: EU)
  Receive Date: 20250820
  Receipt Date: 20250820
  Transmission Date: 20251021
  Serious: Yes (Other)
  Sender: AMGEN
  Company Number: EU-PFIZER INC-202500165360

PATIENT
  Sex: Female

DRUGS (2)
  1. ETANERCEPT [Suspect]
     Active Substance: ETANERCEPT
     Indication: Product used for unknown indication
     Route: 065
     Dates: start: 200606
  2. ETANERCEPT [Suspect]
     Active Substance: ETANERCEPT
     Route: 065
     Dates: start: 200909

REACTIONS (2)
  - Abortion spontaneous [Unknown]
  - Treatment failure [Unknown]

NARRATIVE: CASE EVENT DATE: 20090901
